FAERS Safety Report 7234196-3 (Version None)
Quarter: 2011Q1

REPORT INFORMATION
  Report Type: 
  Country: None (occurrence: None)
  Receive Date: 20110119
  Receipt Date: 20110110
  Transmission Date: 20110831
  Serious: Yes (Other)
  Sender: FDA-Public Use
  Company Number: GB-GENZYME-POMP-1000945

PATIENT
  Sex: Female
  Weight: 70 kg

DRUGS (5)
  1. MYOZYME [Suspect]
     Indication: GLYCOGEN STORAGE DISEASE TYPE II
     Dosage: 20 MG/KG, Q2W
     Route: 042
     Dates: start: 20080221, end: 20100101
  2. VITAMIN D [Concomitant]
     Indication: PRODUCT USED FOR UNKNOWN INDICATION
     Dosage: UNK UNK, UNK
     Route: 065
  3. CALCIUM [Concomitant]
     Indication: PRODUCT USED FOR UNKNOWN INDICATION
     Dosage: UNK UNK, UNK
     Route: 065
  4. QUETIAPINE [Concomitant]
     Indication: DEPRESSION
     Dosage: UNK UNK, UNK
     Route: 065
  5. CITALOPRAM [Concomitant]
     Indication: DEPRESSION
     Dosage: UNK UNK, UNK
     Route: 065

REACTIONS (5)
  - GLOMERULONEPHRITIS MEMBRANOUS [None]
  - DEPRESSION [None]
  - OEDEMA PERIPHERAL [None]
  - NEPHROTIC SYNDROME [None]
  - PROTEINURIA [None]
